FAERS Safety Report 7851077-2 (Version None)
Quarter: 2011Q4

REPORT INFORMATION
  Report Type: 
  Country: None (occurrence: None)
  Receive Date: 20111026
  Receipt Date: 20111023
  Transmission Date: 20120403
  Serious: No
  Sender: FDA-Public Use
  Company Number: US-TEVA-306448USA

PATIENT
  Sex: Female
  Weight: 47.67 kg

DRUGS (3)
  1. PANTOPRAZOLE [Concomitant]
     Indication: PRODUCT USED FOR UNKNOWN INDICATION
  2. PLAN B ONE-STEP [Suspect]
     Indication: POST COITAL CONTRACEPTION
     Dosage: 1.5 MILLIGRAM;
     Route: 048
     Dates: start: 20111022, end: 20111022
  3. BIRTH CONTROL PILL [Concomitant]
     Indication: CONTRACEPTION

REACTIONS (1)
  - VISION BLURRED [None]
